FAERS Safety Report 10022460 (Version 2)
Quarter: 2014Q1

REPORT INFORMATION
  Report Type: Report from Study
  Country: BE (occurrence: BE)
  Receive Date: 20140319
  Receipt Date: 20140319
  Transmission Date: 20141002
  Serious: Yes (Hospitalization)
  Sender: FDA-Public Use
  Company Number: BE-ABBVIE-13P-013-1040929-00

PATIENT
  Age: 57 Year
  Sex: Female
  Weight: 64 kg

DRUGS (27)
  1. VOLTAREN [Concomitant]
     Indication: RADIUS FRACTURE
     Dates: start: 20090402
  2. SEROQUEL [Concomitant]
     Indication: PSYCHOTIC DISORDER
  3. DAFALGAN KINDER [Concomitant]
     Indication: PAIN
     Dates: start: 2012, end: 2013
  4. CYANOCOBALAMIN [Concomitant]
     Indication: VITAMIN B12 DEFICIENCY
     Dates: start: 2010, end: 2013
  5. DEPAKINE CHRONO [Concomitant]
     Indication: MIGRAINE
     Dates: start: 20110525
  6. DOVOBET [Concomitant]
     Indication: PSORIASIS
     Route: 061
     Dates: start: 2011, end: 2013
  7. STILNOCT [Concomitant]
     Indication: INSOMNIA
     Dates: start: 20110525
  8. PANADOL PLUS [Concomitant]
     Indication: PAIN
     Dates: start: 20110525
  9. INDERAL [Concomitant]
     Indication: PROPHYLAXIS
     Dates: start: 2011, end: 2012
  10. FURADANTINE [Concomitant]
     Indication: DYSURIA
     Dates: start: 2012, end: 2012
  11. MONURIL [Concomitant]
     Indication: CYSTITIS
     Dates: start: 2012, end: 201212
  12. CRANBERRY AKUT [Concomitant]
     Indication: PROPHYLAXIS
     Dates: start: 20120613
  13. PROPANOLOL HYDROCHLORIDE [Concomitant]
     Indication: PROPHYLAXIS
     Dates: start: 2012
  14. ENTEROL [Concomitant]
     Indication: DIARRHOEA
     Dosage: 1 TABLET
     Dates: start: 20110525
  15. BICLAR [Concomitant]
     Indication: INFECTION
     Dates: start: 201203, end: 201203
  16. TOPAMAX [Concomitant]
     Indication: MIGRAINE
  17. HUMIRA [Suspect]
     Indication: CROHN^S DISEASE
     Route: 058
     Dates: start: 20080506
  18. TRAZOLAN [Concomitant]
     Indication: INSOMNIA
     Dates: start: 2004, end: 20100108
  19. TRAZOLAN [Concomitant]
     Dates: start: 2011
  20. MYOLASTAN [Concomitant]
     Indication: ANXIETY
     Dates: start: 2005, end: 201101
  21. MYOLASTAN [Concomitant]
     Indication: INSOMNIA
     Dates: start: 20110525, end: 2012
  22. ZOLPIDEM [Concomitant]
     Indication: ANXIETY
     Dates: start: 2007
  23. TAVANIC [Concomitant]
     Indication: URINARY TRACT INFECTION
  24. LYSANXIA [Concomitant]
     Indication: ANXIETY
     Dates: start: 2008, end: 2011
  25. LYSANXIA [Concomitant]
     Dates: start: 2011
  26. CYMBALTA [Concomitant]
     Indication: ANXIETY
     Dates: start: 2008
  27. IMITREX [Concomitant]
     Indication: HEADACHE
     Dates: start: 2009

REACTIONS (1)
  - Subileus [Recovered/Resolved]
